FAERS Safety Report 8420850-4 (Version None)
Quarter: 2012Q2

REPORT INFORMATION
  Report Type: 
  Country: None (occurrence: None)
  Receive Date: 20120608
  Receipt Date: 20120604
  Transmission Date: 20120825
  Serious: Yes (Hospitalization)
  Sender: FDA-Public Use
  Company Number: US-BAYER-2012-055120

PATIENT
  Age: 45 Year
  Sex: Female

DRUGS (1)
  1. MIRENA [Suspect]
     Dosage: 20 MCG/24HR, CONT
     Route: 015
     Dates: start: 20070301, end: 20111201

REACTIONS (7)
  - GENITAL HAEMORRHAGE [None]
  - CARDIAC DISORDER [None]
  - MENSTRUATION DELAYED [None]
  - ASTHENIA [None]
  - ASTHMA [None]
  - FEELING ABNORMAL [None]
  - MENORRHAGIA [None]
